FAERS Safety Report 8258144-2 (Version None)
Quarter: 2012Q2

REPORT INFORMATION
  Report Type: 
  Country: None (occurrence: None)
  Receive Date: 20120404
  Receipt Date: 20120327
  Transmission Date: 20120825
  Serious: Yes (Other)
  Sender: FDA-Public Use
  Company Number: PHHY2011US15769

PATIENT
  Sex: Female
  Weight: 99.773 kg

DRUGS (11)
  1. JANUVIA [Concomitant]
  2. VITAMIN D [Concomitant]
  3. GLEEVEC [Suspect]
     Indication: CHRONIC MYELOID LEUKAEMIA
     Dosage: 600 MG, DAILY
     Route: 048
     Dates: start: 20101208
  4. GLEEVEC [Suspect]
     Indication: MALIGNANT SOFT TISSUE NEOPLASM
     Dosage: 400 MG, DAILY
     Route: 048
     Dates: start: 20101210
  5. AMITRIPTYLINE HCL [Concomitant]
  6. ADVAIR DISKUS 100/50 [Concomitant]
  7. OMEPRAZOLE [Concomitant]
  8. CALCIUM CARBONATE [Concomitant]
  9. CITALOPRAM HYDROBROMIDE [Concomitant]
  10. GLEEVEC [Suspect]
     Dosage: 300 MG, DAILY
     Route: 048
     Dates: start: 20101207, end: 20120327
  11. PRAVASTATIN SODIUM [Concomitant]

REACTIONS (18)
  - MASS [None]
  - ACTIVITIES OF DAILY LIVING IMPAIRED [None]
  - BLISTER [None]
  - FATIGUE [None]
  - EYE IRRITATION [None]
  - SKIN EXFOLIATION [None]
  - PAIN IN EXTREMITY [None]
  - ASTHENOPIA [None]
  - DRY SKIN [None]
  - SKIN INJURY [None]
  - ERYTHEMA OF EYELID [None]
  - CONTUSION [None]
  - PRURITUS [None]
  - SKIN HAEMORRHAGE [None]
  - SKIN IRRITATION [None]
  - EYE SWELLING [None]
  - HAIR TEXTURE ABNORMAL [None]
  - EYELID OEDEMA [None]
